FAERS Safety Report 24641618 (Version 2)
Quarter: 2024Q4

REPORT INFORMATION
  Report Type: Spontaneous
  Country: US (occurrence: US)
  Receive Date: 20241120
  Receipt Date: 20241127
  Transmission Date: 20250115
  Serious: No
  Sender: NOVARTIS
  Company Number: US-002147023-NVSC2024US119855

PATIENT
  Sex: Female
  Weight: 85 kg

DRUGS (1)
  1. FABHALTA [Suspect]
     Active Substance: IPTACOPAN HYDROCHLORIDE
     Indication: Paroxysmal nocturnal haemoglobinuria
     Dosage: 200 MG, BID
     Route: 048
     Dates: start: 20240524

REACTIONS (15)
  - Paraesthesia [Unknown]
  - Chest pain [Unknown]
  - Headache [Unknown]
  - Fatigue [Not Recovered/Not Resolved]
  - Tremor [Unknown]
  - Asthenia [Unknown]
  - Abdominal pain upper [Unknown]
  - Chest discomfort [Unknown]
  - Dyspnoea [Unknown]
  - Abdominal distension [Unknown]
  - Blood glucose increased [Not Recovered/Not Resolved]
  - Malaise [Not Recovered/Not Resolved]
  - Feeling abnormal [Not Recovered/Not Resolved]
  - Illness [Not Recovered/Not Resolved]
  - Inappropriate schedule of product administration [Unknown]
